FAERS Safety Report 7129553-X (Version None)
Quarter: 2010Q4

REPORT INFORMATION
  Report Type: 
  Country: None (occurrence: None)
  Receive Date: 20101130
  Receipt Date: 20101116
  Transmission Date: 20110411
  Serious: Yes (Hospitalization)
  Sender: FDA-Public Use
  Company Number: IR-MYLANLABS-2010S1021416

PATIENT
  Age: 28 Year
  Sex: Female

DRUGS (3)
  1. VALPROIC ACID [Suspect]
     Indication: INTENTIONAL OVERDOSE
     Route: 065
  2. CLONAZEPAM [Suspect]
  3. PHENOBARBITAL TAB [Suspect]

REACTIONS (4)
  - INTENTIONAL OVERDOSE [None]
  - MIOSIS [None]
  - RESPIRATORY RATE DECREASED [None]
  - SOMNOLENCE [None]
